FAERS Safety Report 4464784-9 (Version None)
Quarter: 2004Q3

REPORT INFORMATION
  Report Type: 
  Country: None (occurrence: None)
  Receive Date: 20040928
  Receipt Date: 20040928
  Transmission Date: 20050211
  Serious: Yes (Death)
  Sender: FDA-Public Use
  Company Number: None

PATIENT
  Age: 19 Year
  Sex: Male
  Weight: 68.4932 kg

DRUGS (2)
  1. MINOCYCLINE HCL [Suspect]
     Indication: ACNE
     Dosage: 100 MG 1 DAILY ORAL
     Route: 048
     Dates: start: 20020508, end: 20030819
  2. FLUOXETINE [Suspect]
     Indication: ANXIETY
     Dosage: 20 MG 2 TIMES /D ORAL
     Route: 048
     Dates: start: 20020815, end: 20030819

REACTIONS (1)
  - DEATH [None]
